FAERS Safety Report 4469220-4 (Version None)
Quarter: 2004Q4

REPORT INFORMATION
  Report Type: 
  Country: None (occurrence: None)
  Receive Date: 20041008
  Receipt Date: 20040927
  Transmission Date: 20050328
  Serious: Yes (Hospitalization)
  Sender: FDA-Public Use
  Company Number: JP-BRISTOL-MYERS SQUIBB COMPANY-12721353

PATIENT
  Age: 47 Year
  Sex: Male

DRUGS (13)
  1. GATIFLO TABS 100 MG [Suspect]
     Indication: BRONCHITIS ACUTE
     Route: 048
     Dates: start: 20040903, end: 20040909
  2. ZYLORIC [Concomitant]
     Route: 048
     Dates: start: 20040618
  3. URSO [Concomitant]
     Route: 048
     Dates: start: 20040305
  4. AMINOLEBAN [Concomitant]
     Route: 048
     Dates: start: 20031219
  5. BIOFERMIN R [Concomitant]
     Route: 048
     Dates: start: 20031119
  6. SEVEN E-P [Concomitant]
     Route: 048
     Dates: start: 20040806
  7. ALDACTONE-A [Concomitant]
     Route: 048
     Dates: start: 20031103
  8. LASIX [Concomitant]
     Route: 048
     Dates: start: 20031103
  9. PARIET [Concomitant]
     Route: 048
     Dates: start: 20040709
  10. ADONA [Concomitant]
     Dosage: INTERRUPTED FROM 19-FEB-2004 TO 03-SEP-2004
     Route: 048
     Dates: start: 20040213, end: 20040909
  11. ASCORBIC ACID + PANTOTHENIC ACID [Concomitant]
     Route: 048
     Dates: start: 20040903, end: 20040909
  12. VENOGLOBULIN-I [Concomitant]
     Route: 041
     Dates: start: 19870101, end: 20040903
  13. RULID [Concomitant]
     Indication: PROPHYLAXIS
     Route: 048
     Dates: start: 20031001

REACTIONS (7)
  - DECREASED APPETITE [None]
  - DEHYDRATION [None]
  - HYPERGLYCAEMIA [None]
  - INSULIN RESISTANCE [None]
  - MALAISE [None]
  - POLYDIPSIA [None]
  - POLYURIA [None]
